FAERS Safety Report 9840673 (Version 1)
Quarter: 2013Q4

REPORT INFORMATION
  Report Type: Spontaneous
  Country: US (occurrence: None)
  Receive Date: 20131223
  Receipt Date: 20131223
  Transmission Date: 20140711
  Serious: Yes (Other)
  Sender: FDA-Public Use
  Company Number: 221068LEO

PATIENT
  Sex: Female

DRUGS (1)
  1. PICATO [Suspect]
     Dosage: DAILY TOPICAL?STARTED FEW MONHS AGO AND COMPLETED THERAPY
     Route: 061

REACTIONS (1)
  - Application site irritation [None]
